FAERS Safety Report 4989648-3 (Version None)
Quarter: 2006Q2

REPORT INFORMATION
  Report Type: 
  Country: None (occurrence: None)
  Receive Date: 20060502
  Receipt Date: 20060104
  Transmission Date: 20061013
  Serious: Yes (Hospitalization, Disabling)
  Sender: FDA-Public Use
  Company Number: US-MERCK-0601USA00540

PATIENT
  Age: 56 Year
  Sex: Female
  Weight: 75 kg

DRUGS (10)
  1. VIOXX [Suspect]
     Indication: NERVE COMPRESSION
     Route: 048
     Dates: start: 20020914, end: 20030801
  2. VIOXX [Suspect]
     Route: 048
     Dates: start: 20020914, end: 20030801
  3. VIOXX [Suspect]
     Indication: SHOULDER PAIN
     Route: 048
     Dates: start: 20020914, end: 20030801
  4. VIOXX [Suspect]
     Route: 048
     Dates: start: 20020914, end: 20030801
  5. OXYCODONE HYDROCHLORIDE AND ACETAMINOPHEN [Concomitant]
     Indication: PAIN
     Route: 065
     Dates: start: 20020827, end: 20040301
  6. TRAMADOLOR [Concomitant]
     Indication: PAIN
     Route: 065
     Dates: start: 20021207, end: 20030916
  7. CYCLOBENZAPRINE HYDROCHLORIDE [Concomitant]
     Indication: PAIN
     Route: 065
     Dates: start: 20020914, end: 20030201
  8. PINDOLOL [Concomitant]
     Indication: HYPERTENSION
     Route: 065
     Dates: start: 20021113, end: 20021201
  9. PINDOLOL [Concomitant]
     Indication: CARDIOVASCULAR DISORDER
     Route: 065
     Dates: start: 20021113, end: 20021201
  10. FUROSEMIDE [Concomitant]
     Indication: FLUID RETENTION
     Route: 065
     Dates: start: 20021003, end: 20021201

REACTIONS (11)
  - ARTHROPATHY [None]
  - BLOOD CHOLESTEROL INCREASED [None]
  - BREAST NEOPLASM [None]
  - CARPAL TUNNEL SYNDROME [None]
  - CORONARY ARTERY DISEASE [None]
  - DYSPEPSIA [None]
  - GASTRIC ULCER [None]
  - HERPES VIRUS INFECTION [None]
  - MYOCARDIAL INFARCTION [None]
  - SLEEP APNOEA SYNDROME [None]
  - STENT OCCLUSION [None]
